FAERS Safety Report 8942554 (Version 1)
Quarter: 2012Q4

REPORT INFORMATION
  Report Type: Spontaneous
  Country: DE (occurrence: None)
  Receive Date: 20121123
  Receipt Date: 20121123
  Transmission Date: 20130627
  Serious: Yes (Death)
  Sender: FDA-Public Use
  Company Number: 2012-20008

PATIENT
  Age: 54 Year
  Sex: Male

DRUGS (16)
  1. QUETIAPINE [Suspect]
     Indication: DRUG USE FOR UNKNOWN INDICATION
     Dosage: 400 mg, daily, Unknown
  2. TAMSULOSIN HYDROCHLORIDE [Suspect]
     Indication: DRUG USE FOR UNKNOWN INDICATION
     Dosage: 0.4 mg, daily, Unknown
  3. AMITRIPTYLINE [Suspect]
     Indication: DRUG USE FOR UNKNOWN INDICATION
     Dosage: 50 mg, daily, Unknown
  4. DIAZEPAM [Suspect]
     Indication: DRUG USE FOR UNKNOWN INDICATION
     Dosage: 10 mg, daily, Unknown
  5. SODIUM VALPROATE [Suspect]
     Indication: DRUG USE FOR UNKNOWN INDICATION
     Dosage: 1500 mg, daily, Unknown
  6. OMEPRAZOLE [Suspect]
     Indication: DRUG USE FOR UNKNOWN INDICATION
     Dosage: 20 mg, daily, Unknown
  7. LACTULOSE [Suspect]
     Indication: PYREXIA
     Dosage: UNK, unknown, Unknown
  8. PARACETAMOL [Suspect]
     Indication: PYREXIA
     Dosage: UNK, unknown, Unknown
  9. VANCOMYCIN HCI [Suspect]
     Indication: PYREXIA
     Dosage: UNK, unknown, Unknown
  10. FUROSEMIDE [Suspect]
     Indication: PYREXIA
     Dosage: UNK, unknown, Unknown
  11. CARBAMAZEPINE [Suspect]
     Indication: EPILEPSY
     Dosage: UNK, unknown, Unknown
  12. TRIMETHOPRIM [Suspect]
     Indication: DRUG USE FOR UNKNOWN INDICATION
     Dosage: UNK, unknown, Unknown
  13. CYCLOBENZAPRINE HYDROCHLORIDE [Suspect]
     Indication: MUSCLE RELAXANT THERAPY
     Dosage: UNK, unknown, Unknown
  14. TIAPRIDE [Suspect]
     Indication: DRUG USE FOR UNKNOWN INDICATION
     Dosage: UNK, unknown, Unknown
  15. SULFADICRAMIDE [Suspect]
     Indication: INFECTION
     Dosage: UNK, unknown, Unknown
  16. INFLUENZA VACCINE [Suspect]
     Indication: INFLUENZA
     Dosage: UNK, unknown, Unknown

REACTIONS (1)
  - Body temperature increased [None]
